FAERS Safety Report 13004173 (Version 2)
Quarter: 2019Q1

REPORT INFORMATION
  Report Type: Report from Study
  Country: FR (occurrence: FR)
  Receive Date: 20161206
  Receipt Date: 20190329
  Transmission Date: 20190417
  Serious: Yes (Death, Life-Threatening)
  Sender: FDA-Public Use
  Company Number: PHHY2016FR139373

PATIENT
  Age: 76 Year
  Sex: Male
  Weight: 66.5 kg

DRUGS (3)
  1. ZARZIO [Suspect]
     Active Substance: FILGRASTIM
     Indication: NEUTROPENIA
     Dosage: 30 DF, QD (30 MU/ 0.5 ML)
     Route: 058
     Dates: start: 20160414, end: 20160524
  2. FLUOROURACIL 5 FU [Concomitant]
     Active Substance: FLUOROURACIL
     Indication: PRODUCT USED FOR UNKNOWN INDICATION
     Dosage: UNK
     Route: 065
     Dates: start: 20160517, end: 20160519
  3. LEVOFOLINATE [Concomitant]
     Active Substance: LEVOLEUCOVORIN CALCIUM
     Indication: PRODUCT USED FOR UNKNOWN INDICATION
     Dosage: UNK
     Route: 065
     Dates: start: 20160517, end: 20160519

REACTIONS (5)
  - General physical condition abnormal [Fatal]
  - Metastases to peritoneum [Fatal]
  - Subileus [Fatal]
  - Disease progression [Fatal]
  - Ascites [Fatal]

NARRATIVE: CASE EVENT DATE: 20160509
